FAERS Safety Report 7370024-3 (Version None)
Quarter: 2011Q1

REPORT INFORMATION
  Report Type: 
  Country: None (occurrence: None)
  Receive Date: 20110323
  Receipt Date: 20110309
  Transmission Date: 20110831
  Serious: Yes (Hospitalization, Other)
  Sender: FDA-Public Use
  Company Number: PHHY2011FR13920

PATIENT
  Sex: Male
  Weight: 113 kg

DRUGS (2)
  1. COTAREG [Suspect]
     Indication: ESSENTIAL HYPERTENSION
     Dosage: 160/25 MG QD
     Route: 048
     Dates: start: 20110122, end: 20110208
  2. AERIUS [Concomitant]
     Indication: HYPERSENSITIVITY
     Dosage: 1 DF, QD IF NEEDED
     Dates: start: 20091101

REACTIONS (6)
  - FALL [None]
  - MALAISE [None]
  - INJURY [None]
  - LIP SWELLING [None]
  - HYPOTENSION [None]
  - SWELLING FACE [None]
